FAERS Safety Report 17542939 (Version 3)
Quarter: 2020Q2

REPORT INFORMATION
  Report Type: Spontaneous
  Country: US (occurrence: US)
  Receive Date: 20200316
  Receipt Date: 20200425
  Transmission Date: 20200713
  Serious: No
  Sender: FDA-Public Use
  Company Number: US-BIOGEN-2020BI00848168

PATIENT
  Age: 45 Year
  Sex: Female

DRUGS (2)
  1. VUMERITY [Suspect]
     Active Substance: DIROXIMEL FUMARATE
     Route: 048
     Dates: start: 20200223
  2. VUMERITY [Suspect]
     Active Substance: DIROXIMEL FUMARATE
     Indication: MULTIPLE SCLEROSIS
     Route: 048
     Dates: start: 202002

REACTIONS (10)
  - Abdominal pain upper [Unknown]
  - Product dose omission [Unknown]
  - Diarrhoea [Unknown]
  - Gastric disorder [Unknown]
  - Feeling of body temperature change [Unknown]
  - Pruritus [Unknown]
  - Poor quality sleep [Unknown]
  - Flushing [Unknown]
  - Faeces hard [Unknown]
  - Constipation [Unknown]

NARRATIVE: CASE EVENT DATE: 202002
